FAERS Safety Report 12712911 (Version 1)
Quarter: 2016Q3

REPORT INFORMATION
  Report Type: Spontaneous
  Country: JP (occurrence: JP)
  Receive Date: 20160902
  Receipt Date: 20160902
  Transmission Date: 20161109
  Serious: Yes (Other)
  Sender: FDA-Public Use
  Company Number: JP-ELI_LILLY_AND_COMPANY-JP201608013449

PATIENT
  Age: 39 Year
  Sex: Female

DRUGS (5)
  1. ROHYPNOL [Concomitant]
     Active Substance: FLUNITRAZEPAM
     Route: 048
  2. CYMBALTA [Suspect]
     Active Substance: DULOXETINE HYDROCHLORIDE
     Indication: PRODUCT USED FOR UNKNOWN INDICATION
     Route: 048
  3. BENZALIN                           /00036201/ [Concomitant]
     Active Substance: NITRAZEPAM
     Dosage: UNK
     Dates: start: 20160823
  4. HIRNAMIN                           /00038601/ [Concomitant]
     Active Substance: LEVOMEPROMAZINE
     Dosage: UNK
     Dates: start: 20160823
  5. LEXAPRO [Concomitant]
     Active Substance: ESCITALOPRAM OXALATE
     Route: 048

REACTIONS (1)
  - Pneumonia [Unknown]
